FAERS Safety Report 11141175 (Version 1)
Quarter: 2015Q2

REPORT INFORMATION
  Report Type: Spontaneous
  Country: GB (occurrence: GB)
  Receive Date: 20150527
  Receipt Date: 20150527
  Transmission Date: 20150821
  Serious: Yes (Other)
  Sender: FDA-Public Use
  Company Number: GB-GLAXOSMITHKLINE-GB2015GSK072330

PATIENT
  Age: 39 Year
  Sex: Male

DRUGS (10)
  1. FLUTICASONE [Suspect]
     Active Substance: FLUTICASONE\FLUTICASONE PROPIONATE
     Indication: NASAL CONGESTION
  2. GABAPENTIN. [Concomitant]
     Active Substance: GABAPENTIN
  3. CO-DYDRAMOL [Concomitant]
     Active Substance: ACETAMINOPHEN\DIHYDROCODEINE
  4. SALBUTAMOL [Concomitant]
     Active Substance: ALBUTEROL
  5. CITALOPRAM [Concomitant]
     Active Substance: CITALOPRAM HYDROBROMIDE
  6. ZOPICLONE [Concomitant]
     Active Substance: ZOPICLONE
  7. FOLIC ACID. [Concomitant]
     Active Substance: FOLIC ACID
  8. STRIBILD [Interacting]
     Active Substance: COBICISTAT\ELVITEGRAVIR\EMTRICITABINE\TENOFOVIR DISOPROXIL FUMARATE
     Indication: HIV INFECTION
     Dosage: UNK
     Dates: start: 201403
  9. OMEPRAZOLE. [Concomitant]
     Active Substance: OMEPRAZOLE
  10. BECLOMETHASONE [Concomitant]
     Active Substance: BECLOMETHASONE
     Dosage: 100 UG, BID

REACTIONS (5)
  - Blood corticotrophin decreased [Recovered/Resolved]
  - ACTH stimulation test abnormal [Recovered/Resolved]
  - Adrenal suppression [Recovered/Resolved]
  - Blood cortisol decreased [Recovered/Resolved]
  - Drug interaction [Recovered/Resolved]
